FAERS Safety Report 5619507-4 (Version None)
Quarter: 2008Q1

REPORT INFORMATION
  Report Type: 
  Country: None (occurrence: None)
  Receive Date: 20080108
  Receipt Date: 20070717
  Transmission Date: 20080703
  Serious: Yes (Hospitalization)
  Sender: FDA-Public Use
  Company Number: A03200704671

PATIENT
  Sex: Male

DRUGS (1)
  1. DEMEROL [Suspect]

REACTIONS (1)
  - DRUG INEFFECTIVE [None]
